FAERS Safety Report 24387213 (Version 2)
Quarter: 2025Q3

REPORT INFORMATION
  Report Type: Report from Study
  Country: ZA (occurrence: ZA)
  Receive Date: 20241002
  Receipt Date: 20250810
  Transmission Date: 20251020
  Serious: Yes (Death, Other)
  Sender: ALEXION PHARMACEUTICALS
  Company Number: ZA-AstraZeneca-CH-00708467A

PATIENT
  Age: 64 Year
  Sex: Male

DRUGS (7)
  1. DAPAGLIFLOZIN [Suspect]
     Active Substance: DAPAGLIFLOZIN
     Indication: Diabetes mellitus
  2. Vomidon [Concomitant]
     Indication: Nausea
  3. Vomidon [Concomitant]
     Indication: Vomiting
  4. CITALOPRAM HYDROBROMIDE [Concomitant]
     Active Substance: CITALOPRAM HYDROBROMIDE
     Indication: Mental disorder
  5. BISOPROLOL [Concomitant]
     Active Substance: BISOPROLOL
     Indication: Hypertension
  6. Spiractin [Concomitant]
     Indication: Hypertension
  7. LIBRAX [Concomitant]
     Active Substance: CHLORDIAZEPOXIDE HYDROCHLORIDE\CLIDINIUM BROMIDE
     Indication: Abdominal pain upper

REACTIONS (1)
  - Death [Fatal]
